FAERS Safety Report 13214135 (Version 4)
Quarter: 2018Q1

REPORT INFORMATION
  Report Type: Spontaneous
  Country: US (occurrence: US)
  Receive Date: 20170210
  Receipt Date: 20180102
  Transmission Date: 20180508
  Serious: Yes (Hospitalization)
  Sender: FDA-Public Use
  Company Number: US-VIFOR (INTERNATIONAL) INC.-VIT-2017-01182

PATIENT
  Sex: Male
  Weight: 81.72 kg

DRUGS (4)
  1. VELTASSA [Suspect]
     Active Substance: PATIROMER
     Route: 048
     Dates: start: 201702
  2. VELTASSA [Suspect]
     Active Substance: PATIROMER
     Route: 048
     Dates: start: 201701
  3. VELTASSA [Suspect]
     Active Substance: PATIROMER
     Indication: BLOOD POTASSIUM INCREASED
     Route: 048
     Dates: start: 201611
  4. VELTASSA [Suspect]
     Active Substance: PATIROMER
     Route: 048
     Dates: start: 20170131

REACTIONS (7)
  - Blood potassium increased [Recovered/Resolved]
  - Off label use [Unknown]
  - Product physical issue [Unknown]
  - Blood potassium decreased [Recovered/Resolved]
  - Hypertension [Recovered/Resolved]
  - Drug administration error [Unknown]
  - Product solubility abnormal [Unknown]

NARRATIVE: CASE EVENT DATE: 2017
